FAERS Safety Report 13706951 (Version 2)
Quarter: 2017Q3

REPORT INFORMATION
  Report Type: Spontaneous
  Country: GB (occurrence: GB)
  Receive Date: 20170630
  Receipt Date: 20170710
  Transmission Date: 20171127
  Serious: Yes (Hospitalization)
  Sender: FDA-Public Use
  Company Number: GB-BIOMARINAP-GB-2017-114540

PATIENT
  Age: 10 Year
  Sex: Female

DRUGS (3)
  1. ALDURAZYME [Suspect]
     Active Substance: LARONIDASE
     Dosage: 4000 IU, QOW
     Route: 041
  2. ALDURAZYME [Suspect]
     Active Substance: LARONIDASE
     Dosage: 3500 IU, QW
     Route: 041
  3. ALDURAZYME [Suspect]
     Active Substance: LARONIDASE
     Indication: PRODUCT USED FOR UNKNOWN INDICATION
     Dosage: 3500 IU, QOW
     Route: 041

REACTIONS (2)
  - Incorrect dose administered [Unknown]
  - Adenoidal disorder [Unknown]

NARRATIVE: CASE EVENT DATE: 201706
